FAERS Safety Report 8057021-X (Version None)
Quarter: 2012Q1

REPORT INFORMATION
  Report Type: 
  Country: None (occurrence: None)
  Receive Date: 20120119
  Receipt Date: 20120117
  Transmission Date: 20120608
  Serious: No
  Sender: FDA-Public Use
  Company Number: US-B.I. PHARMACEUTICALS,INC./RIDGEFIELD-2012-BP-00969BP

PATIENT
  Age: 79 Year
  Sex: Male

DRUGS (7)
  1. NITROGLYCERIN [Concomitant]
     Indication: CHEST PAIN
  2. OMEPRAZOLE [Concomitant]
     Indication: GASTROOESOPHAGEAL REFLUX DISEASE
  3. METOPROLOL TARTRATE [Concomitant]
     Indication: HYPERTENSION
  4. HYDROCHLOROTHIAZIDE [Concomitant]
     Indication: HYPERTENSION
  5. PRADAXA [Suspect]
     Indication: OEDEMA PERIPHERAL
     Dosage: 300 MG
     Route: 048
     Dates: start: 20120109
  6. RAMIPRIL [Concomitant]
     Indication: HYPERTENSION
  7. TRICOR [Concomitant]
     Indication: CHEST PAIN

REACTIONS (2)
  - OFF LABEL USE [None]
  - FATIGUE [None]
